FAERS Safety Report 7385322-7 (Version None)
Quarter: 2011Q1

REPORT INFORMATION
  Report Type: 
  Country: None (occurrence: None)
  Receive Date: 20110330
  Receipt Date: 20100721
  Transmission Date: 20110831
  Serious: No
  Sender: FDA-Public Use
  Company Number: US-MYLANLABS-2010S1013203

PATIENT
  Age: 52 Year
  Sex: Male

DRUGS (3)
  1. FLOMAX [Suspect]
     Route: 048
     Dates: start: 20100710
  2. EMSAM [Suspect]
     Indication: DEPRESSION
     Dosage: CHANGED Q24H
     Route: 062
     Dates: start: 20100601
  3. DIOVAN [Concomitant]
     Indication: BLOOD PRESSURE INCREASED

REACTIONS (3)
  - ORTHOSTATIC HYPOTENSION [None]
  - DIZZINESS POSTURAL [None]
  - DRUG INTERACTION [None]
